FAERS Safety Report 24791545 (Version 1)
Quarter: 2024Q4

REPORT INFORMATION
  Report Type: Report from Study
  Country: IT (occurrence: IT)
  Receive Date: 20241231
  Receipt Date: 20241231
  Transmission Date: 20250115
  Serious: Yes (Other)
  Sender: JOHNSON AND JOHNSON
  Company Number: IT-JNJFOC-20241274100

PATIENT
  Sex: Male

DRUGS (1)
  1. SPRAVATO [Suspect]
     Active Substance: ESKETAMINE
     Indication: Product used for unknown indication
     Route: 045

REACTIONS (10)
  - Delirium [Unknown]
  - Hallucination [Unknown]
  - Vision blurred [Unknown]
  - Balance disorder [Unknown]
  - Hunger [Unknown]
  - Dissociation [Unknown]
  - Dizziness [Unknown]
  - Altered visual depth perception [Unknown]
  - Hyperacusis [Unknown]
  - Photophobia [Unknown]
